FAERS Safety Report 5408003-5 (Version None)
Quarter: 2007Q3

REPORT INFORMATION
  Report Type: 
  Country: None (occurrence: None)
  Receive Date: 20070719
  Receipt Date: 20070717
  Transmission Date: 20080115
  Serious: Yes (Hospitalization)
  Sender: FDA-Public Use
  Company Number: 200711975

PATIENT
  Age: 3 Day
  Sex: Female

DRUGS (1)
  1. RHOPHYLAC (IMMUNOGLOBULIN HUMAN ANTI-RH) (CSL BEHRING) [Suspect]
     Indication: MEDICATION ERROR
     Dosage: 100 UG DAILY IV
     Route: 042
     Dates: start: 20070503, end: 20070503

REACTIONS (6)
  - ACCIDENTAL EXPOSURE [None]
  - COOMBS TEST POSITIVE [None]
  - DRUG ADMINISTRATION ERROR [None]
  - HAEMOLYSIS NEONATAL [None]
  - JAUNDICE NEONATAL [None]
  - WRONG DRUG ADMINISTERED [None]
